FAERS Safety Report 25415151 (Version 7)
Quarter: 2025Q3

REPORT INFORMATION
  Report Type: Report from Study
  Country: BR (occurrence: BR)
  Receive Date: 20250609
  Receipt Date: 20250820
  Transmission Date: 20251020
  Serious: Yes (Other)
  Sender: NOVARTIS
  Company Number: BR-002147023-NVSC2025BR052711

PATIENT
  Age: 45 Year
  Sex: Female
  Weight: 90 kg

DRUGS (9)
  1. KISQALI [Suspect]
     Active Substance: RIBOCICLIB SUCCINATE
     Indication: Metastases to bone
     Route: 065
     Dates: start: 202411
  2. KISQALI [Suspect]
     Active Substance: RIBOCICLIB SUCCINATE
     Indication: Metastases to lung
     Route: 065
     Dates: start: 20250310
  3. KISQALI [Suspect]
     Active Substance: RIBOCICLIB SUCCINATE
     Indication: Breast cancer
     Dosage: 3 TABLETS A DAY FOR 21 DAYS AND A PAUSE OF 7
     Route: 048
  4. DESVENLAFAXINE SUCCINATE [Concomitant]
     Active Substance: DESVENLAFAXINE SUCCINATE
     Indication: Product used for unknown indication
     Dosage: 100 MG, QD, 30 EXTENDED-RELEASE FILM-COATED TABLETS, ADULT USE, LABORATORY TORRENT PHARMA
     Route: 048
  5. PURAN [Concomitant]
     Active Substance: LEVOTHYROXINE SODIUM
     Indication: Product used for unknown indication
     Dosage: 125 MCG, TABLETS, ADULT AND PEDIATRIC USE, LABORATORY SANOFI
     Route: 048
  6. ANASTROZOLE [Concomitant]
     Active Substance: ANASTROZOLE
     Indication: Product used for unknown indication
     Dosage: 1 MG, ADULT USE, CONTAINS 30 FILM-COATED TABLETS LABORATORY SUN PHARMA 1X A DAY, CONTINUOUS USE
     Route: 048
  7. CODEINE [Concomitant]
     Active Substance: CODEINE
     Indication: Product used for unknown indication
     Route: 048
  8. METFORMIN [Concomitant]
     Active Substance: METFORMIN HYDROCHLORIDE
     Indication: Product used for unknown indication
     Dosage: 1 DOSAGE FORM, QD
     Route: 065
  9. TAMOXIFEN [Concomitant]
     Active Substance: TAMOXIFEN
     Indication: Product used for unknown indication
     Route: 065

REACTIONS (19)
  - Pigmentation disorder [Not Recovered/Not Resolved]
  - Blister [Recovered/Resolved]
  - Confusional state [Unknown]
  - Rash [Not Recovered/Not Resolved]
  - Pruritus [Recovered/Resolved]
  - Hypersensitivity [Recovered/Resolved]
  - Mass [Recovered/Resolved]
  - Urticaria [Recovered/Resolved]
  - Skin exfoliation [Recovered/Resolved]
  - Mass [Recovered/Resolved]
  - Ulcer [Recovering/Resolving]
  - Haemosiderin stain [Recovered/Resolved]
  - Dry skin [Recovering/Resolving]
  - Scratch [Unknown]
  - Pain [Unknown]
  - Erythema [Unknown]
  - Skin atrophy [Unknown]
  - Pruritus [Recovered/Resolved]
  - Rash [Recovered/Resolved]

NARRATIVE: CASE EVENT DATE: 20250101
